FAERS Safety Report 20480809 (Version 1)
Quarter: 2022Q1

REPORT INFORMATION
  Report Type: Spontaneous
  Country: US (occurrence: None)
  Receive Date: 20220216
  Receipt Date: 20220216
  Transmission Date: 20220423
  Serious: Yes (Life-Threatening, Hospitalization, Other)
  Sender: FDA-Public Use
  Company Number: None

PATIENT
  Age: 17 Year
  Sex: Male
  Weight: 62.6 kg

DRUGS (1)
  1. CRIZANLIZUMAB [Suspect]
     Active Substance: CRIZANLIZUMAB
     Indication: Sickle cell disease
     Dosage: OTHER FREQUENCY : DAY 1 AND DAY 14;?
     Route: 041

REACTIONS (9)
  - Infusion related reaction [None]
  - Pain [None]
  - Acute chest syndrome [None]
  - Respiratory depression [None]
  - Neurological symptom [None]
  - Unresponsive to stimuli [None]
  - Brain injury [None]
  - Fat embolism [None]
  - Tracheostomy [None]

NARRATIVE: CASE EVENT DATE: 20220127
